FAERS Safety Report 6543559-0 (Version None)
Quarter: 2010Q1

REPORT INFORMATION
  Report Type: 
  Country: None (occurrence: None)
  Receive Date: 20100120
  Receipt Date: 20091211
  Transmission Date: 20100710
  Serious: Yes (Other)
  Sender: FDA-Public Use
  Company Number: BR-GENENTECH-296524

PATIENT
  Age: 29 Year
  Sex: Female

DRUGS (1)
  1. MABTHERA [Suspect]
     Indication: JUVENILE ARTHRITIS
     Dosage: UNK
     Route: 050
     Dates: start: 20091118

REACTIONS (8)
  - BLOOD CREATININE INCREASED [None]
  - BLOOD UREA INCREASED [None]
  - CARDIOMEGALY [None]
  - DYSPNOEA EXERTIONAL [None]
  - FATIGUE [None]
  - GENERALISED OEDEMA [None]
  - MALAISE [None]
  - URTICARIA [None]
